FAERS Safety Report 9639043 (Version 1)
Quarter: 2013Q4

REPORT INFORMATION
  Report Type: Report from Study
  Country: US (occurrence: US)
  Receive Date: 20131022
  Receipt Date: 20131022
  Transmission Date: 20140711
  Serious: No
  Sender: FDA-Public Use
  Company Number: US-ABBVIE-12P-163-0994588-00

PATIENT
  Age: 36 Year
  Sex: Female

DRUGS (3)
  1. LUPRON DEPOT [Suspect]
     Indication: ENDOMETRIOSIS
     Dates: start: 201208
  2. AMETHIA [Concomitant]
     Indication: PRODUCT USED FOR UNKNOWN INDICATION
  3. ACIPHEX [Concomitant]
     Indication: PRODUCT USED FOR UNKNOWN INDICATION

REACTIONS (2)
  - Eye pain [Not Recovered/Not Resolved]
  - Headache [Recovered/Resolved]
